FAERS Safety Report 6451514-4 (Version None)
Quarter: 2009Q4

REPORT INFORMATION
  Report Type: 
  Country: None (occurrence: None)
  Receive Date: 20091123
  Receipt Date: 20090915
  Transmission Date: 20100525
  Serious: No
  Sender: FDA-Public Use
  Company Number: US-BRISTOL-MYERS SQUIBB COMPANY-14781942

PATIENT
  Age: 47 Year
  Sex: Female

DRUGS (1)
  1. COAPROVEL TABS [Suspect]
     Route: 048
     Dates: start: 20090901

REACTIONS (3)
  - DIZZINESS [None]
  - HEADACHE [None]
  - MUSCLE SPASMS [None]
